FAERS Safety Report 21016761 (Version 2)
Quarter: 2022Q3

REPORT INFORMATION
  Report Type: Spontaneous
  Country: US (occurrence: US)
  Receive Date: 20220628
  Receipt Date: 20220722
  Transmission Date: 20221027
  Serious: Yes (Other)
  Sender: FDA-Public Use
  Company Number: US-BAYER-2022A088778

PATIENT
  Sex: Female

DRUGS (1)
  1. MIRENA [Suspect]
     Active Substance: LEVONORGESTREL
     Indication: Contraception
     Dosage: 20?G/DAY
     Route: 015
     Dates: start: 20180206, end: 20180419

REACTIONS (4)
  - Genital haemorrhage [None]
  - Medical device pain [None]
  - Abdominal pain [None]
  - Female sexual dysfunction [None]

NARRATIVE: CASE EVENT DATE: 20180101
